FAERS Safety Report 7278639-8 (Version None)
Quarter: 2011Q1

REPORT INFORMATION
  Report Type: 
  Country: None (occurrence: None)
  Receive Date: 20110207
  Receipt Date: 20110131
  Transmission Date: 20110831
  Serious: No
  Sender: FDA-Public Use
  Company Number: US-PFIZER INC-2011023183

PATIENT
  Sex: Female

DRUGS (3)
  1. DITROPAN [Concomitant]
     Indication: GASTRIC DISORDER
  2. DETROL [Suspect]
  3. DARIFENACIN [Concomitant]
     Indication: GASTRIC DISORDER

REACTIONS (2)
  - GASTRIC DISORDER [None]
  - POLLAKIURIA [None]
